FAERS Safety Report 4950086-0 (Version None)
Quarter: 2006Q1

REPORT INFORMATION
  Report Type: 
  Country: None (occurrence: None)
  Receive Date: 20060320
  Receipt Date: 20060320
  Transmission Date: 20060701
  Serious: No
  Sender: FDA-Public Use
  Company Number: None

PATIENT
  Age: 74 Year
  Sex: Male
  Weight: 95.8 kg

DRUGS (1)
  1. TADALAFIL [Suspect]

REACTIONS (3)
  - INFLAMMATION [None]
  - LIVER DISORDER [None]
  - RASH [None]
